FAERS Safety Report 4965224-3 (Version None)
Quarter: 2006Q1

REPORT INFORMATION
  Report Type: 
  Country: None (occurrence: None)
  Receive Date: 20060201
  Receipt Date: 20051213
  Transmission Date: 20060701
  Serious: No
  Sender: FDA-Public Use
  Company Number: FACT0500729

PATIENT
  Age: 40 Year
  Sex: Female

DRUGS (11)
  1. FACTIVE [Suspect]
     Indication: RESPIRATORY TRACT INFECTION BACTERIAL
     Dosage: 320MG QD ORAL
     Route: 048
  2. ALLEGRA [Concomitant]
  3. ALBUTEROL [Concomitant]
  4. SPIRONOLACTONE [Concomitant]
  5. LISINOPRIL [Concomitant]
  6. RISPERDAL [Concomitant]
  7. STRATTERA [Concomitant]
  8. PROTONIX [Concomitant]
  9. LEXAPRO [Concomitant]
  10. SINGULAIR [Concomitant]
  11. ADVAIR DISKUS 100/50 [Concomitant]

REACTIONS (1)
  - RASH GENERALISED [None]
